FAERS Safety Report 22258412 (Version 1)
Quarter: 2023Q2

REPORT INFORMATION
  Report Type: Spontaneous
  Country: CA (occurrence: CA)
  Receive Date: 20230427
  Receipt Date: 20230427
  Transmission Date: 20230721
  Serious: Yes (Hospitalization, Other)
  Sender: FDA-Public Use
  Company Number: CA-AUROBINDO-AUR-APL-2023-032274

PATIENT
  Age: 39 Year
  Sex: Female

DRUGS (3)
  1. GABAPENTIN [Suspect]
     Active Substance: GABAPENTIN
     Indication: Alcohol use disorder
     Dosage: 500 MILLIGRAM, 3 TIMES A DAY
     Route: 065
  2. GABAPENTIN [Suspect]
     Active Substance: GABAPENTIN
     Dosage: 600 MILLIGRAM, 3 TIMES A DAY
     Route: 065
  3. NABILONE [Suspect]
     Active Substance: NABILONE
     Indication: Procedural pain
     Dosage: UNK
     Route: 065

REACTIONS (4)
  - Tibia fracture [Unknown]
  - Dysphoria [Unknown]
  - Drug intolerance [Unknown]
  - Fall [Unknown]
